FAERS Safety Report 4717187-3 (Version None)
Quarter: 2005Q3

REPORT INFORMATION
  Report Type: 
  Country: None (occurrence: None)
  Receive Date: 20050719
  Receipt Date: 20050706
  Transmission Date: 20060218
  Serious: Yes (Other)
  Sender: FDA-Public Use
  Company Number: PHHO2005BR10951

PATIENT
  Age: 44 Year
  Sex: Female

DRUGS (2)
  1. PARLODEL [Suspect]
     Indication: PITUITARY TUMOUR
     Dosage: 5 MG, BID
     Route: 048
  2. PARLODEL [Suspect]
     Indication: PITUITARY TUMOUR
     Dosage: 3 TABS
     Route: 048

REACTIONS (3)
  - HEADACHE [None]
  - RHINITIS [None]
  - SYNCOPE [None]
